FAERS Safety Report 6137791-8 (Version None)
Quarter: 2009Q1

REPORT INFORMATION
  Report Type: 
  Country: None (occurrence: None)
  Receive Date: 20090225
  Receipt Date: 20090216
  Transmission Date: 20090719
  Serious: Yes (Death, Hospitalization, Other)
  Sender: FDA-Public Use
  Company Number: 2009US000231

PATIENT
  Age: 55 Year
  Sex: Male

DRUGS (22)
  1. AMEVIVE [Suspect]
     Indication: PSORIASIS
     Dosage: 15 MG, WEEKLY, SUBCUTANEOUS
     Route: 058
     Dates: start: 20081010
  2. METHOTREXATE [Suspect]
     Indication: PSORIASIS
  3. MORPHINE [Concomitant]
  4. FLUCONAZOLE [Concomitant]
  5. ACYCLOVIR [Concomitant]
  6. BALNETAR, 2.5% [Concomitant]
  7. LOVENOX [Concomitant]
  8. FOLIC ACID [Concomitant]
  9. INSULIN (INSULIN) [Concomitant]
  10. MEGACE [Concomitant]
  11. MIRATAZAPINE (MIRTAZAPINE) [Concomitant]
  12. ZOFRAN [Concomitant]
  13. OXYCODONE HCL [Concomitant]
  14. PROTONIX [Concomitant]
  15. SENNA PLUS (DOCUSATE SODIUM) [Concomitant]
  16. TRIAMCINOLONE [Concomitant]
  17. HYDROCERIN (WOOL ALCOHOLS, PARAFFIN, LIQUID) [Concomitant]
  18. SEPTRA (SULFAMETHOXOLE, TRIMETHOPRIM) [Concomitant]
  19. AQUAPHOR (PARAFFIN) [Concomitant]
  20. EUCERIN (PARAFFIN, LIQUID, PETROLATUM, WOOL FAT) [Concomitant]
  21. DESONIDE [Concomitant]
  22. MOMETASONE FUROATE [Concomitant]

REACTIONS (10)
  - ADRENAL INSUFFICIENCY [None]
  - DECREASED APPETITE [None]
  - DISEASE RECURRENCE [None]
  - MALNUTRITION [None]
  - OTITIS EXTERNA [None]
  - PANCYTOPENIA [None]
  - PSORIASIS [None]
  - SEPTIC SHOCK [None]
  - SYSTEMIC CANDIDA [None]
  - UNRESPONSIVE TO STIMULI [None]
